FAERS Safety Report 9547419 (Version 2)
Quarter: 2013Q3

REPORT INFORMATION
  Report Type: Spontaneous
  Country: US (occurrence: US)
  Receive Date: 20130924
  Receipt Date: 20130927
  Transmission Date: 20140515
  Serious: Yes (Other)
  Sender: FDA-Public Use
  Company Number: US-SANOFI-AVENTIS-2013SA093115

PATIENT
  Sex: Male

DRUGS (3)
  1. LANTUS SOLOSTAR [Suspect]
     Route: 065
  2. HUMALOG [Suspect]
     Route: 065
  3. SOLOSTAR [Concomitant]

REACTIONS (1)
  - Liver disorder [Unknown]
